FAERS Safety Report 6819051-2 (Version None)
Quarter: 2010Q3

REPORT INFORMATION
  Report Type: 
  Country: None (occurrence: None)
  Receive Date: 20100701
  Receipt Date: 20100616
  Transmission Date: 20110219
  Serious: Yes (Life-Threatening)
  Sender: FDA-Public Use
  Company Number: TRP_07058_2010

PATIENT
  Sex: Male
  Weight: 99.7913 kg

DRUGS (8)
  1. INFERGEN [Suspect]
     Indication: HEPATITIS C
     Dosage: 15 UG QD SUBCUTANEOUS, 9 UG QD SUBCUTANEOUS
     Route: 058
     Dates: start: 20091125, end: 20100521
  2. INFERGEN [Suspect]
     Indication: HEPATITIS C
     Dosage: 15 UG QD SUBCUTANEOUS, 9 UG QD SUBCUTANEOUS
     Route: 058
     Dates: start: 20100521
  3. RIBASPHERE [Suspect]
     Indication: HEPATITIS C
     Dosage: 600 MG BID ORAL, 200 MG QAM AND 400 MG QPM, ORAL
     Route: 048
     Dates: start: 20091125, end: 20100323
  4. RIBASPHERE [Suspect]
     Indication: HEPATITIS C
     Dosage: 600 MG BID ORAL, 200 MG QAM AND 400 MG QPM, ORAL
     Route: 048
     Dates: start: 20100402
  5. LISINOPRIL [Concomitant]
  6. METFORMIN HCL [Concomitant]
  7. ISOSORBIDE MONONITRATE [Concomitant]
  8. ASPIRIN [Concomitant]

REACTIONS (26)
  - ABDOMINAL DISCOMFORT [None]
  - ABDOMINAL DISTENSION [None]
  - ABDOMINAL PAIN UPPER [None]
  - AGITATION [None]
  - ANAEMIA [None]
  - BLOOD CREATININE INCREASED [None]
  - BLOOD GLUCOSE INCREASED [None]
  - CHEST PAIN [None]
  - COUGH [None]
  - CRYING [None]
  - DECREASED APPETITE [None]
  - DEHYDRATION [None]
  - EMOTIONAL DISORDER [None]
  - FLATULENCE [None]
  - HAEMOLYTIC ANAEMIA [None]
  - HYPERKALAEMIA [None]
  - HYPERTRIGLYCERIDAEMIA [None]
  - LEUKOPENIA [None]
  - NAUSEA [None]
  - NEUTROPENIA [None]
  - PAIN [None]
  - PERIPHERAL COLDNESS [None]
  - SINUSITIS [None]
  - SPUTUM DISCOLOURED [None]
  - THROMBOCYTOPENIA [None]
  - VOMITING [None]
